FAERS Safety Report 7561839-7 (Version None)
Quarter: 2011Q2

REPORT INFORMATION
  Report Type: 
  Country: None (occurrence: None)
  Receive Date: 20110621
  Receipt Date: 20110607
  Transmission Date: 20111010
  Serious: Yes (Other)
  Sender: FDA-Public Use
  Company Number: CA-GENENTECH-320197

PATIENT
  Sex: Female
  Weight: 73.1 kg

DRUGS (9)
  1. XOLAIR [Suspect]
     Indication: ASTHMA
     Dosage: 300 MG, 1/MONTH
     Route: 058
     Dates: start: 20091112
  2. ALVESCO [Concomitant]
     Indication: PRODUCT USED FOR UNKNOWN INDICATION
  3. AIROMIR [Concomitant]
     Indication: PRODUCT USED FOR UNKNOWN INDICATION
  4. ACTONEL [Concomitant]
     Indication: PRODUCT USED FOR UNKNOWN INDICATION
  5. CARBACHOL [Concomitant]
     Indication: PRODUCT USED FOR UNKNOWN INDICATION
  6. CORTISONE [Concomitant]
     Indication: PRODUCT USED FOR UNKNOWN INDICATION
  7. SINGULAIR [Concomitant]
     Indication: PRODUCT USED FOR UNKNOWN INDICATION
  8. REACTINE (CANADA) [Concomitant]
     Indication: PRODUCT USED FOR UNKNOWN INDICATION
  9. RHINOCORT [Concomitant]
     Indication: PRODUCT USED FOR UNKNOWN INDICATION

REACTIONS (12)
  - HYPERSENSITIVITY [None]
  - ABDOMINAL DISTENSION [None]
  - HAIR TEXTURE ABNORMAL [None]
  - PYREXIA [None]
  - SKIN ODOUR ABNORMAL [None]
  - THROAT IRRITATION [None]
  - DYSPNOEA [None]
  - DYSPHONIA [None]
  - JOINT CREPITATION [None]
  - RHINORRHOEA [None]
  - PNEUMONIA [None]
  - EPISTAXIS [None]
